FAERS Safety Report 4411132-6 (Version None)
Quarter: 2004Q2

REPORT INFORMATION
  Report Type: 
  Country: None (occurrence: None)
  Receive Date: 20040630
  Receipt Date: 20040304
  Transmission Date: 20050107
  Serious: No
  Sender: FDA-Public Use
  Company Number: 03P-163-0216565-00

PATIENT
  Age: 74 Year
  Sex: Female
  Weight: 58.0604 kg

DRUGS (16)
  1. HUMIRA [Suspect]
     Indication: RHEUMATOID ARTHRITIS
     Dosage: 40 MG, 1 IN 2 WK, SUBCUTANEOUS; 40 MG, 1 IN 2 WK, SUBCUTANEOUS
     Route: 058
     Dates: start: 20030414, end: 20031201
  2. HUMIRA [Suspect]
     Indication: RHEUMATOID ARTHRITIS
     Dosage: 40 MG, 1 IN 2 WK, SUBCUTANEOUS; 40 MG, 1 IN 2 WK, SUBCUTANEOUS
     Route: 058
     Dates: start: 20040129, end: 20040218
  3. HUMIRA [Suspect]
     Indication: RHEUMATOID ARTHRITIS
     Dosage: 40 MG, 1 IN 2 WK, SUBCUTANEOUS; 40 MG, 1 IN 2 WK, SUBCUTANEOUS
     Route: 058
     Dates: start: 20040304
  4. . [Concomitant]
  5. LEFLUNOMIDE [Suspect]
     Indication: RHEUMATOID ARTHRITIS
     Dosage: 1 IN 1 D
     Dates: start: 20030301
  6. DILTIAZEM HYDROCHLORIDE [Concomitant]
  7. DYAZIDE [Concomitant]
  8. ERGOCALCIFEROL [Concomitant]
  9. POTASSIUM [Concomitant]
  10. OMEPRAZOLE [Concomitant]
  11. DIAZEPAM [Concomitant]
  12. ZOLPIDEM TARTRATE [Concomitant]
  13. MULTI-VITAMINS [Concomitant]
  14. ALENDRONATE SODIUM [Concomitant]
  15. CYANOCOOBALAMIN [Concomitant]
  16. .. [Suspect]

REACTIONS (14)
  - ALOPECIA [None]
  - BRONCHITIS [None]
  - DRUG INEFFECTIVE [None]
  - ECCHYMOSIS [None]
  - HAIR GROWTH ABNORMAL [None]
  - HYPERTENSION [None]
  - INJECTION SITE BURNING [None]
  - INJECTION SITE ERYTHEMA [None]
  - INJECTION SITE PRURITUS [None]
  - INJECTION SITE SWELLING [None]
  - LOCALISED INFECTION [None]
  - PRURITUS [None]
  - RASH ERYTHEMATOUS [None]
  - SINUSITIS [None]
